FAERS Safety Report 20424703 (Version 1)
Quarter: 2022Q1

REPORT INFORMATION
  Report Type: Report from Study
  Country: US (occurrence: US)
  Receive Date: 20220203
  Receipt Date: 20220203
  Transmission Date: 20220423
  Serious: No
  Sender: FDA-Public Use
  Company Number: US-EXELIXIS-CABO-21038829

PATIENT
  Age: 70 Year
  Sex: Male

DRUGS (3)
  1. CABOMETYX [Suspect]
     Active Substance: CABOZANTINIB S-MALATE
     Indication: Hepatocellular carcinoma
     Dosage: 20 MG, QD
     Route: 048
     Dates: start: 202101
  2. CABOMETYX [Suspect]
     Active Substance: CABOZANTINIB S-MALATE
     Dosage: 40 MG, QD
     Route: 048
     Dates: start: 202102, end: 20210429
  3. CABOMETYX [Suspect]
     Active Substance: CABOZANTINIB S-MALATE
     Dosage: 40 MG, QOD
     Route: 048

REACTIONS (8)
  - Faeces discoloured [Unknown]
  - Illness [Unknown]
  - Tooth disorder [Unknown]
  - Diarrhoea [Unknown]
  - Gastrointestinal pain [Unknown]
  - Fatigue [Unknown]
  - Blood pressure systolic increased [Unknown]
  - Inappropriate schedule of product administration [Unknown]

NARRATIVE: CASE EVENT DATE: 20210201
